FAERS Safety Report 15304875 (Version 2)
Quarter: 2019Q1

REPORT INFORMATION
  Report Type: Spontaneous
  Country: US (occurrence: US)
  Receive Date: 20180822
  Receipt Date: 20190315
  Transmission Date: 20190417
  Serious: Yes (Hospitalization, Congenital Anomaly, Other)
  Sender: FDA-Public Use
  Company Number: US-SUN PHARMACEUTICAL INDUSTRIES LTD-2018US-181922

PATIENT
  Age: 0 Year
  Sex: Male

DRUGS (4)
  1. ONDANSETRON [Suspect]
     Active Substance: ONDANSETRON
     Indication: NAUSEA
  2. ONDANSETRON [Suspect]
     Active Substance: ONDANSETRON
     Indication: MORNING SICKNESS
     Dosage: 1 DF, TID
     Route: 064
     Dates: start: 20140210, end: 20160218
  3. METHIMAZOLE. [Suspect]
     Active Substance: METHIMAZOLE
     Indication: HYPERTHYROIDISM
     Dosage: UNK
     Route: 064
     Dates: end: 20140821
  4. ATENOLOL. [Suspect]
     Active Substance: ATENOLOL
     Indication: HYPERTHYROIDISM
     Dosage: UNK
     Route: 064
     Dates: end: 20140821

REACTIONS (3)
  - VACTERL syndrome [Not Recovered/Not Resolved]
  - Jaundice [Not Recovered/Not Resolved]
  - Foetal exposure during pregnancy [Unknown]

NARRATIVE: CASE EVENT DATE: 20140325
